FAERS Safety Report 8019598-X (Version None)
Quarter: 2012Q1

REPORT INFORMATION
  Report Type: 
  Country: None (occurrence: None)
  Receive Date: 20120103
  Receipt Date: 20111221
  Transmission Date: 20120608
  Serious: Yes (Hospitalization)
  Sender: FDA-Public Use
  Company Number: US-GLAXOSMITHKLINE-A0874035A

PATIENT
  Age: 55 Year
  Sex: Female
  Weight: 128.2 kg

DRUGS (1)
  1. AVANDIA [Suspect]
     Indication: DIABETES MELLITUS
     Dosage: 4MG TWICE PER DAY
     Route: 048
     Dates: start: 20001107, end: 20050101

REACTIONS (7)
  - MYOCARDIAL INFARCTION [None]
  - THROMBOSIS [None]
  - CEREBROVASCULAR ACCIDENT [None]
  - TRANSIENT ISCHAEMIC ATTACK [None]
  - BACK INJURY [None]
  - FALL [None]
  - LIMB INJURY [None]
